FAERS Safety Report 22248422 (Version 1)
Quarter: 2023Q2

REPORT INFORMATION
  Report Type: Spontaneous
  Country: ES (occurrence: ES)
  Receive Date: 20230425
  Receipt Date: 20230425
  Transmission Date: 20230722
  Serious: Yes (Hospitalization, Other)
  Sender: FDA-Public Use
  Company Number: None

PATIENT
  Age: 89 Year
  Sex: Female
  Weight: 59 kg

DRUGS (17)
  1. ENOXAPARIN SODIUM [Suspect]
     Active Substance: ENOXAPARIN SODIUM
     Dosage: 70 MG, BID
     Route: 058
     Dates: start: 20230307
  2. CEFTRIAXONE [Concomitant]
     Active Substance: CEFTRIAXONE
     Indication: Urinary tract infection
     Dosage: 1 G, QD
     Dates: start: 20230305, end: 20230309
  3. ENTRESTO [Concomitant]
     Active Substance: SACUBITRIL\VALSARTAN
     Dosage: 1 DF, BID (28 TABLETS)
     Dates: start: 20230313, end: 20230316
  4. FUROSEMIDE [Concomitant]
     Active Substance: FUROSEMIDE
     Dosage: 40 MG, QD (30 TABLETS)
     Route: 048
     Dates: start: 20210416
  5. PARACETAMOL CINFA [Concomitant]
     Dosage: 1 G, TID (20 TABLETS)
     Route: 048
     Dates: start: 20230304, end: 20230321
  6. MIRTAZAPINE [Concomitant]
     Active Substance: MIRTAZAPINE
     Dosage: 15 MG, QD (30 TABLETS)
     Route: 048
     Dates: start: 20210416
  7. POTASSIUM CHLORIDE [Concomitant]
     Active Substance: POTASSIUM CHLORIDE
     Dosage: 600 MG, BID (60 CAPSULES)
     Dates: start: 20230310, end: 20230316
  8. ALDACTONE [Concomitant]
     Active Substance: SPIRONOLACTONE
     Dosage: 25 MG, QD (20 TABLETS)
     Dates: start: 20230313, end: 20230321
  9. AMOXICILLIN\CLAVULANATE POTASSIUM [Concomitant]
     Active Substance: AMOXICILLIN\CLAVULANATE POTASSIUM
     Dosage: 3 DF, TID (30 TABLETS)
     Dates: start: 20230309, end: 20230313
  10. INSULIN PORK\INSULIN PURIFIED PORK [Concomitant]
     Active Substance: INSULIN PORK\INSULIN PURIFIED PORK
     Dosage: 1 IU, QID ( PRE-FILLED PENS OF 3 ML)
     Dates: start: 20230307, end: 20230321
  11. BISOPROLOL FUMARATE [Concomitant]
     Active Substance: BISOPROLOL FUMARATE
     Dosage: 1.25 MG, BID (20 TABLETS)
     Route: 048
     Dates: start: 20220909
  12. MASTICAL D [Concomitant]
     Dosage: 1 DF, QD, 500 MG ONCE A DAY (60 TABLETS)
     Route: 048
     Dates: start: 20170907
  13. SIMVASTATIN [Concomitant]
     Active Substance: SIMVASTATIN
     Dosage: 40 MG, QD (28 TABLETS)
     Route: 048
     Dates: start: 20120723
  14. SERTRALINE [Concomitant]
     Active Substance: SERTRALINE HYDROCHLORIDE
     Dosage: 50 MG, QD 930 TABLETS)
     Route: 048
     Dates: start: 20170221
  15. ACTRAPID [Concomitant]
     Active Substance: INSULIN HUMAN
     Dosage: 1 IU, TID (1 VIAL OF 10 ML)
     Dates: start: 20230305, end: 20230307
  16. JARDIANCE [Concomitant]
     Active Substance: EMPAGLIFLOZIN
     Dosage: 10 MG, QD (30 TABLETS)
     Dates: start: 20230307, end: 20230321
  17. SINTROM [Concomitant]
     Active Substance: ACENOCOUMAROL
     Dosage: 2 MG, QD (20 TABLETS)
     Dates: start: 20220909

REACTIONS (1)
  - Bullous haemorrhagic dermatosis [Recovered/Resolved]

NARRATIVE: CASE EVENT DATE: 20230316
